FAERS Safety Report 16032230 (Version 4)
Quarter: 2021Q2

REPORT INFORMATION
  Report Type: Report from Study
  Country: US (occurrence: US)
  Receive Date: 20190304
  Receipt Date: 20210622
  Transmission Date: 20210716
  Serious: Yes (Hospitalization, Other)
  Sender: FDA-Public Use
  Company Number: US-GILEAD-2019-0386774

PATIENT
  Age: 56 Year
  Sex: Female

DRUGS (12)
  1. PANTOPRAZOLE [Concomitant]
     Active Substance: PANTOPRAZOLE
  2. IDELALISIB [Suspect]
     Active Substance: IDELALISIB
     Indication: FOLLICULAR LYMPHOMA
     Dosage: 100 MG, BID
     Route: 048
     Dates: start: 20181217, end: 20190116
  3. HEPARIN [Concomitant]
     Active Substance: HEPARIN SODIUM
  4. AMIODARONE [Concomitant]
     Active Substance: AMIODARONE
  5. METRONIDAZOLE. [Concomitant]
     Active Substance: METRONIDAZOLE
  6. VITAMIN B COMPLEX W VITAMIN C + FOLIC ACID [Concomitant]
  7. ACYCLOVIR [ACICLOVIR] [Concomitant]
     Active Substance: ACYCLOVIR
  8. DIGOXIN. [Concomitant]
     Active Substance: DIGOXIN
  9. MICAFUNGIN. [Concomitant]
     Active Substance: MICAFUNGIN SODIUM
  10. SULFAMETHOXAZOLE AND TRIMETHOPRIM [Concomitant]
     Active Substance: SULFAMETHOXAZOLE\TRIMETHOPRIM
  11. HYDROCORTISONE;NYSTATIN;ZINC OXIDE [Concomitant]
  12. MORPHINE [Concomitant]
     Active Substance: MORPHINE

REACTIONS (9)
  - Alanine aminotransferase increased [Recovered/Resolved]
  - Graft versus host disease in gastrointestinal tract [Unknown]
  - Diarrhoea [Not Recovered/Not Resolved]
  - Clostridium difficile colitis [Unknown]
  - Cholelithiasis [Unknown]
  - Nausea [Recovered/Resolved with Sequelae]
  - Aspartate aminotransferase increased [Recovered/Resolved]
  - Platelet count decreased [Not Recovered/Not Resolved]
  - Vomiting [Unknown]

NARRATIVE: CASE EVENT DATE: 20181217
